FAERS Safety Report 22293512 (Version 1)
Quarter: 2023Q2

REPORT INFORMATION
  Report Type: Report from Study
  Country: CO (occurrence: CO)
  Receive Date: 20230508
  Receipt Date: 20230508
  Transmission Date: 20230722
  Serious: Yes (Death)
  Sender: FDA-Public Use
  Company Number: CO-002147023-NVSC2021CO063715

PATIENT
  Age: 75 Year
  Sex: Female

DRUGS (2)
  1. KISQALI [Suspect]
     Active Substance: RIBOCICLIB
     Indication: Breast cancer metastatic
     Dosage: 600 MG, QD (21 DAYS PER MONTH)
     Route: 048
     Dates: start: 20200826
  2. FEMARA [Suspect]
     Active Substance: LETROZOLE
     Indication: Breast cancer
     Dosage: 2.5 MG, QD
     Route: 048
     Dates: start: 20200826

REACTIONS (12)
  - Infarction [Fatal]
  - Hypersensitivity [Unknown]
  - Malaise [Unknown]
  - Drooling [Unknown]
  - Ill-defined disorder [Unknown]
  - Facial nerve disorder [Unknown]
  - Abdominal discomfort [Unknown]
  - Illness [Unknown]
  - Asthenia [Unknown]
  - Vomiting [Recovering/Resolving]
  - Nausea [Unknown]
  - Abdominal pain upper [Unknown]

NARRATIVE: CASE EVENT DATE: 20230427
